FAERS Safety Report 7471679-5 (Version None)
Quarter: 2011Q2

REPORT INFORMATION
  Report Type: 
  Country: None (occurrence: None)
  Receive Date: 20110511
  Receipt Date: 20110415
  Transmission Date: 20111010
  Serious: Yes (Other)
  Sender: FDA-Public Use
  Company Number: NO-BAYER-2011-015746

PATIENT
  Age: 38 Year
  Sex: Female

DRUGS (1)
  1. MIRENA [Suspect]
     Indication: CONTRACEPTION
     Dosage: UNK
     Route: 015
     Dates: start: 20101220

REACTIONS (4)
  - DEVICE BREAKAGE [None]
  - PROCEDURAL PAIN [None]
  - UTERINE PERFORATION [None]
  - COMPLICATION OF DEVICE INSERTION [None]
